FAERS Safety Report 5970788-7 (Version None)
Quarter: 2008Q4

REPORT INFORMATION
  Report Type: 
  Country: None (occurrence: None)
  Receive Date: 20081126
  Receipt Date: 20081114
  Transmission Date: 20090506
  Serious: No
  Sender: FDA-Public Use
  Company Number: US-ABBOTT-08P-163-0487684-00

PATIENT
  Sex: Female

DRUGS (6)
  1. SIMCOR [Suspect]
     Indication: BLOOD TRIGLYCERIDES INCREASED
     Dosage: 500/20 MG; IN ONE WEEK, WILL INCREASE TO 2 PILLS
     Dates: start: 20081024
  2. SIMCOR [Suspect]
     Indication: HIGH DENSITY LIPOPROTEIN DECREASED
  3. ACETYLSALICYLIC ACID SRT [Concomitant]
     Indication: DRUG USE FOR UNKNOWN INDICATION
  4. ACETYLSALICYLIC ACID SRT [Concomitant]
  5. DIOVAN HCT [Concomitant]
     Indication: DRUG USE FOR UNKNOWN INDICATION
  6. KAPSOVIT [Concomitant]
     Indication: DRUG USE FOR UNKNOWN INDICATION

REACTIONS (1)
  - FEELING HOT [None]
